FAERS Safety Report 18292194 (Version 1)
Quarter: 2020Q3

REPORT INFORMATION
  Report Type: Spontaneous
  Country: MX (occurrence: MX)
  Receive Date: 20200922
  Receipt Date: 20200922
  Transmission Date: 20201103
  Serious: Yes (Hospitalization)
  Sender: FDA-Public Use
  Company Number: MX-TEVA-2020-MX-1829597

PATIENT
  Age: 54 Year
  Sex: Female

DRUGS (3)
  1. GLATIRAMER ACETATE. [Suspect]
     Active Substance: GLATIRAMER ACETATE
     Indication: MULTIPLE SCLEROSIS
     Route: 065
  2. INTERFERON?BETA?1A [Suspect]
     Active Substance: INTERFERON BETA-1A
     Indication: MULTIPLE SCLEROSIS
     Dosage: 12 MILLION (UNIT NOT STATED)
     Route: 065
  3. NATALIZUMAB [Suspect]
     Active Substance: NATALIZUMAB
     Indication: MULTIPLE SCLEROSIS
     Route: 065

REACTIONS (5)
  - Aphasia [Not Recovered/Not Resolved]
  - Status epilepticus [Recovered/Resolved]
  - Hemiparesis [Not Recovered/Not Resolved]
  - Myoclonic epilepsy [Not Recovered/Not Resolved]
  - Progressive multifocal leukoencephalopathy [Recovering/Resolving]
